FAERS Safety Report 16904967 (Version 1)
Quarter: 2019Q4

REPORT INFORMATION
  Report Type: Spontaneous
  Country: US (occurrence: US)
  Receive Date: 20191010
  Receipt Date: 20191010
  Transmission Date: 20200122
  Serious: Yes (Other)
  Sender: FDA-Public Use
  Company Number: None

PATIENT
  Age: 60 Year
  Sex: Female

DRUGS (1)
  1. BUPROPION XL TABLETS [Suspect]
     Active Substance: BUPROPION HYDROCHLORIDE
     Indication: DEPRESSION
     Route: 048
     Dates: start: 20190928, end: 20191010

REACTIONS (3)
  - Therapy cessation [None]
  - Product odour abnormal [None]
  - Nausea [None]

NARRATIVE: CASE EVENT DATE: 20191010
